FAERS Safety Report 9816515 (Version 5)
Quarter: 2015Q2

REPORT INFORMATION
  Report Type: Spontaneous
  Country: US (occurrence: US)
  Receive Date: 20140114
  Receipt Date: 20150506
  Transmission Date: 20150821
  Serious: Yes (Hospitalization, Other)
  Sender: FDA-Public Use
  Company Number: US-009507513-1401USA000957

PATIENT
  Sex: Female
  Weight: 46.77 kg

DRUGS (5)
  1. FOSAMAX [Suspect]
     Active Substance: ALENDRONATE SODIUM
     Indication: OSTEOPOROSIS
     Dosage: 10 MG, QD
     Route: 048
     Dates: start: 1998, end: 200011
  2. VITAMINS (UNSPECIFIED) [Concomitant]
     Active Substance: VITAMINS
     Dosage: UNK
     Dates: start: 1999
  3. CALCIUM (UNSPECIFIED) [Concomitant]
     Active Substance: CALCIUM
     Dosage: 1000 MG, UNK
     Dates: start: 1999
  4. VITAMIN D [Concomitant]
     Active Substance: CHOLECALCIFEROL
     Dosage: 50000 IU, QW
     Dates: start: 1999
  5. FOSAMAX [Suspect]
     Active Substance: ALENDRONATE SODIUM
     Dosage: 70 MG QW
     Route: 048
     Dates: start: 20031002, end: 200509

REACTIONS (25)
  - Osteopenia [Unknown]
  - Dry skin [Unknown]
  - Depression [Unknown]
  - Intramedullary rod insertion [Unknown]
  - Open reduction of fracture [Unknown]
  - Drug ineffective [Unknown]
  - Ilium fracture [Unknown]
  - Renal artery arteriosclerosis [Unknown]
  - Tonsillectomy [Unknown]
  - Asthma [Unknown]
  - Pubis fracture [Unknown]
  - Pubis fracture [Unknown]
  - Breast lump removal [Unknown]
  - Generalised oedema [Unknown]
  - Oedema peripheral [Unknown]
  - Breast cancer [Unknown]
  - Hip fracture [Recovered/Resolved]
  - Femur fracture [Unknown]
  - Haematoma evacuation [Unknown]
  - Pelvic fracture [Unknown]
  - Pubis fracture [Recovered/Resolved]
  - Skin exfoliation [Unknown]
  - Anaemia [Unknown]
  - Chronic obstructive pulmonary disease [Not Recovered/Not Resolved]
  - Hypertension [Unknown]

NARRATIVE: CASE EVENT DATE: 200406
